FAERS Safety Report 8125935 (Version 5)
Quarter: 2013Q2

REPORT INFORMATION
  Report Type: Report from Study
  Country: IN (occurrence: IN)
  Receive Date: 20110908
  Receipt Date: 20130628
  Transmission Date: 20140414
  Serious: Yes (Hospitalization)
  Sender: FDA-Public Use
  Company Number: IN-SANOFI-AVENTIS-2011SA055859

PATIENT
  Age: 23 Year
  Sex: Female
  Weight: 37.6 kg

DRUGS (15)
  1. RIFAMPICIN [Suspect]
     Indication: PULMONARY TUBERCULOSIS
     Route: 065
     Dates: start: 20110823
  2. RIFAMPICIN [Suspect]
     Indication: PULMONARY TUBERCULOSIS
     Route: 065
     Dates: start: 20110830, end: 20110911
  3. BLINDED THERAPY [Suspect]
     Indication: PULMONARY TUBERCULOSIS
     Dosage: 600 MG OR PLACEBO
     Route: 065
     Dates: start: 20110823
  4. BLINDED THERAPY [Suspect]
     Indication: PULMONARY TUBERCULOSIS
     Route: 065
     Dates: start: 20110830, end: 20110911
  5. BLINDED THERAPY [Suspect]
     Indication: PULMONARY TUBERCULOSIS
     Dosage: 300MG OR PLACEBO
     Route: 065
     Dates: start: 20110823
  6. BLINDED THERAPY [Suspect]
     Indication: PULMONARY TUBERCULOSIS
     Dosage: 300MG OR PLACEBO
     Route: 065
     Dates: start: 20110830, end: 20110911
  7. PYRAZINAMIDE [Suspect]
     Indication: PULMONARY TUBERCULOSIS
     Route: 065
     Dates: start: 20110823
  8. PYRAZINAMIDE [Suspect]
     Indication: PULMONARY TUBERCULOSIS
     Route: 065
     Dates: start: 20110830, end: 20110911
  9. BLINDED THERAPY [Suspect]
     Indication: PULMONARY TUBERCULOSIS
     Dosage: 400 MG OR PLACEBO
     Route: 065
     Dates: start: 20110823
  10. BLINDED THERAPY [Suspect]
     Indication: PULMONARY TUBERCULOSIS
     Dosage: 400 MG OR PLACEBO
     Route: 065
     Dates: start: 20110830, end: 20110911
  11. CODEINE [Concomitant]
     Indication: PRODUCT USED FOR UNKNOWN INDICATION
     Dosage: DOSE:3 UNIT(S)
     Route: 065
  12. PARACETAMOL [Concomitant]
     Indication: PRODUCT USED FOR UNKNOWN INDICATION
     Route: 065
  13. ALPRAZOLAM [Concomitant]
     Indication: PRODUCT USED FOR UNKNOWN INDICATION
     Route: 065
  14. CEFTRIAXONE [Concomitant]
     Indication: PRODUCT USED FOR UNKNOWN INDICATION
     Route: 042
     Dates: start: 20110827
  15. SULBACTAM [Concomitant]
     Indication: PRODUCT USED FOR UNKNOWN INDICATION
     Route: 042
     Dates: start: 20110827

REACTIONS (6)
  - Haemorrhage [Recovered/Resolved]
  - Haemoptysis [Recovered/Resolved]
  - Haematemesis [Recovered/Resolved]
  - Haematochezia [Recovered/Resolved]
  - Dyspnoea [Recovered/Resolved]
  - Hydropneumothorax [Recovering/Resolving]
